FAERS Safety Report 7278453-3 (Version None)
Quarter: 2011Q1

REPORT INFORMATION
  Report Type: 
  Country: None (occurrence: None)
  Receive Date: 20110207
  Receipt Date: 20110202
  Transmission Date: 20110831
  Serious: Yes (Other)
  Sender: FDA-Public Use
  Company Number: BR-PFIZER INC-2011001786

PATIENT
  Age: 43 Year
  Sex: Female
  Weight: 62 kg

DRUGS (6)
  1. PANTOZOL [Suspect]
     Indication: GASTRITIS
     Dosage: 40 MG, 1X/DAY
     Route: 048
     Dates: start: 20101201, end: 20101220
  2. ENALAPRIL [Concomitant]
     Indication: HYPERTENSION
     Dosage: 1 DF, 2X/DAY
     Route: 048
     Dates: start: 20070101
  3. METFORMIN [Concomitant]
     Indication: DIABETES MELLITUS
     Dosage: 1 DF, 2X/DAY
     Dates: start: 20070101
  4. PROPRANOLOL [Concomitant]
     Indication: HYPERTENSION
     Dosage: 1 DF, 2X/DAY
     Route: 048
     Dates: start: 20070101
  5. DEPAKOTE [Concomitant]
     Indication: SYNCOPE
     Dosage: 1 DF, 1X/DAY
     Route: 048
     Dates: start: 20080101
  6. RIVOTRIL [Concomitant]
     Indication: PANIC ATTACK
     Dosage: 1 DF, 1X/DAY
     Route: 048
     Dates: start: 19980101

REACTIONS (5)
  - ABDOMINAL PAIN [None]
  - HAEMATEMESIS [None]
  - ASTHENIA [None]
  - BLISTER [None]
  - DYSGEUSIA [None]
